FAERS Safety Report 9617179 (Version 2)
Quarter: 2013Q4

REPORT INFORMATION
  Report Type: Spontaneous
  Country: US (occurrence: US)
  Receive Date: 20131011
  Receipt Date: 20131011
  Transmission Date: 20140711
  Serious: No
  Sender: FDA-Public Use
  Company Number: US-AMGEN-USASP2013063551

PATIENT
  Age: 70 Year
  Sex: Female

DRUGS (7)
  1. PROLIA [Suspect]
     Indication: PRODUCT USED FOR UNKNOWN INDICATION
     Dosage: UNK
     Route: 065
     Dates: start: 201209
  2. METOPROLOL                         /00376902/ [Concomitant]
     Dosage: 25 MG, QD
     Route: 065
  3. TRADJENTA [Concomitant]
     Dosage: 5 MG, UNK
     Route: 065
  4. GLYBURIDE [Concomitant]
     Dosage: 5 MG, BID
     Route: 065
  5. OMEPRAZOLE [Concomitant]
     Route: 065
  6. VESICARE [Concomitant]
     Route: 065
  7. VENLAFAXINE [Concomitant]
     Route: 065

REACTIONS (4)
  - Ear pain [Unknown]
  - Ear disorder [Unknown]
  - Muscle spasms [Unknown]
  - Blood glucose increased [Unknown]
